FAERS Safety Report 17898131 (Version 2)
Quarter: 2020Q3

REPORT INFORMATION
  Report Type: Spontaneous
  Country: US (occurrence: US)
  Receive Date: 20200615
  Receipt Date: 20200909
  Transmission Date: 20201103
  Serious: No
  Sender: FDA-Public Use
  Company Number: US-PERRIGO-20US005898

PATIENT
  Age: 39 Year
  Sex: Female
  Weight: 64.85 kg

DRUGS (3)
  1. ALBUTEROL SULFATE. [Suspect]
     Active Substance: ALBUTEROL SULFATE
     Dosage: UNKNOWN, SINGLE
     Route: 055
     Dates: start: 2020, end: 2020
  2. ALBUTEROL SULFATE. [Suspect]
     Active Substance: ALBUTEROL SULFATE
     Indication: DYSPNOEA
     Dosage: UNKNOWN, UNKNOWN
     Route: 055
     Dates: start: 202004, end: 202004
  3. CYMBALTA [Concomitant]
     Active Substance: DULOXETINE HYDROCHLORIDE
     Indication: FIBROMYALGIA
     Dosage: UNK
     Route: 065
     Dates: start: 202001

REACTIONS (4)
  - Device delivery system issue [Unknown]
  - Drug ineffective [Unknown]
  - Underdose [Recovered/Resolved]
  - Accidental exposure to product [Recovered/Resolved]

NARRATIVE: CASE EVENT DATE: 202004
